FAERS Safety Report 25706528 (Version 1)
Quarter: 2025Q3

REPORT INFORMATION
  Report Type: Spontaneous
  Country: US (occurrence: US)
  Receive Date: 20250820
  Receipt Date: 20250820
  Transmission Date: 20251020
  Serious: No
  Sender: CATALYST PHARMA
  Company Number: US-CATALYST PHARMACEUTICALS-US-CATA-25-00824

PATIENT
  Sex: Male
  Weight: 31.293 kg

DRUGS (9)
  1. AGAMREE [Suspect]
     Active Substance: VAMOROLONE
     Indication: Duchenne muscular dystrophy
     Dosage: 0.7 ML ONCE DAILY
     Route: 048
     Dates: start: 20240502
  2. AGAMREE [Suspect]
     Active Substance: VAMOROLONE
     Dosage: 2 MG/DAY
     Route: 065
  3. AGAMREE [Suspect]
     Active Substance: VAMOROLONE
     Dosage: 1 MG/DAY
     Route: 065
  4. AGAMREE [Suspect]
     Active Substance: VAMOROLONE
     Dosage: 2 ML DAILY
     Route: 048
     Dates: start: 202504, end: 2025
  5. AGAMREE [Suspect]
     Active Substance: VAMOROLONE
     Dosage: 1 ML DAILY
     Route: 048
     Dates: start: 202506, end: 2025
  6. AGAMREE [Suspect]
     Active Substance: VAMOROLONE
     Dosage: 1.5 ML DAILY
     Route: 048
     Dates: start: 2025
  7. ENALAPRIL [Concomitant]
     Active Substance: ENALAPRIL
     Indication: Cardiovascular event prophylaxis
     Dosage: 3 ML TWICE A DAY
     Route: 065
  8. FAMOTIDINE [Concomitant]
     Active Substance: FAMOTIDINE
     Indication: Gastrointestinal disorder prophylaxis
     Dosage: 1.3 ML TWICE A DAY
     Route: 065
  9. VITAMIN D3 [Concomitant]
     Active Substance: CHOLECALCIFEROL
     Indication: Hypovitaminosis
     Dosage: 4000 UNITS DAILY
     Route: 065

REACTIONS (4)
  - Emotional disorder [Recovering/Resolving]
  - Agitation [Recovering/Resolving]
  - Intentional product use issue [Unknown]
  - Treatment noncompliance [Unknown]

NARRATIVE: CASE EVENT DATE: 20250101
